FAERS Safety Report 9928170 (Version 3)
Quarter: 2014Q1

REPORT INFORMATION
  Report Type: Report from Study
  Country: US (occurrence: US)
  Receive Date: 20140227
  Receipt Date: 20140310
  Transmission Date: 20141002
  Serious: Yes (Hospitalization)
  Sender: FDA-Public Use
  Company Number: US-BAYER-2014-002037

PATIENT
  Age: 72 Year
  Sex: Female

DRUGS (3)
  1. ADEMPAS [Suspect]
     Indication: PRODUCT USED FOR UNKNOWN INDICATION
     Dosage: 0.5 MG, TID
     Route: 048
     Dates: start: 20131216
  2. ADEMPAS [Suspect]
     Indication: PRODUCT USED FOR UNKNOWN INDICATION
     Dosage: 1 MG, TID
     Route: 048
     Dates: start: 20140117, end: 20140215
  3. ADEMPAS [Suspect]
     Indication: PRODUCT USED FOR UNKNOWN INDICATION
     Dosage: 1.5 MG, TID
     Route: 048
     Dates: start: 20140205

REACTIONS (9)
  - Dyspnoea [None]
  - Nasopharyngitis [None]
  - Arthralgia [None]
  - Cough [None]
  - Dysphonia [None]
  - Headache [None]
  - Pneumonia [None]
  - Oedema [None]
  - Contusion [None]
